FAERS Safety Report 4944332-7 (Version None)
Quarter: 2006Q1

REPORT INFORMATION
  Report Type: 
  Country: None (occurrence: None)
  Receive Date: 20060315
  Receipt Date: 20060208
  Transmission Date: 20060701
  Serious: Yes (Hospitalization)
  Sender: FDA-Public Use
  Company Number: US-MERCK-0602USA02295

PATIENT
  Age: 61 Year
  Sex: Male
  Weight: 89 kg

DRUGS (6)
  1. VIOXX [Suspect]
     Indication: ARTHRITIS
     Route: 048
     Dates: start: 20030403, end: 20040601
  2. ASPIRIN [Concomitant]
     Route: 065
  3. PEPCID [Concomitant]
     Route: 065
  4. ACYCLOVIR [Concomitant]
     Route: 065
  5. METHADONE HYDROCHLORIDE [Concomitant]
     Route: 065
  6. NORVASC [Concomitant]
     Route: 065

REACTIONS (3)
  - BACK DISORDER [None]
  - BACK PAIN [None]
  - MYOCARDIAL INFARCTION [None]
